FAERS Safety Report 6467250-4 (Version None)
Quarter: 2009Q4

REPORT INFORMATION
  Report Type: 
  Country: None (occurrence: None)
  Receive Date: 20091130
  Receipt Date: 20091110
  Transmission Date: 20100525
  Serious: Yes (Disabling)
  Sender: FDA-Public Use
  Company Number: 2009-4084

PATIENT
  Age: 58 Year
  Sex: Male
  Weight: 90.7 kg

DRUGS (1)
  1. DYSPORT [Suspect]
     Indication: SKIN WRINKLING
     Dosage: SINGLE CYCLE
     Dates: start: 20090912, end: 20090912

REACTIONS (6)
  - ARTHRALGIA [None]
  - EXERCISE TOLERANCE DECREASED [None]
  - FATIGUE [None]
  - HEADACHE [None]
  - INJECTION SITE PAIN [None]
  - NECK PAIN [None]
